FAERS Safety Report 6730966-6 (Version None)
Quarter: 2010Q2

REPORT INFORMATION
  Report Type: 
  Country: None (occurrence: None)
  Receive Date: 20100514
  Receipt Date: 20100428
  Transmission Date: 20101027
  Serious: Yes (Hospitalization)
  Sender: FDA-Public Use
  Company Number: DSA_43127_2010

PATIENT
  Sex: Male

DRUGS (2)
  1. DILTIAZEM HCL [Suspect]
     Indication: DRUG USE FOR UNKNOWN INDICATION
     Dosage: (180 MG BID ORAL)
     Route: 048
  2. BETA BLOCKING AGENTS [Concomitant]

REACTIONS (3)
  - DYSPNOEA [None]
  - EXERCISE TOLERANCE DECREASED [None]
  - VENTRICULAR TACHYCARDIA [None]
